FAERS Safety Report 14798055 (Version 2)
Quarter: 2018Q2

REPORT INFORMATION
  Report Type: Spontaneous
  Country: US (occurrence: US)
  Receive Date: 20180424
  Receipt Date: 20180515
  Transmission Date: 20180711
  Serious: Yes (Other)
  Sender: FDA-Public Use
  Company Number: US-MALLINCKRODT-T201801680

PATIENT
  Age: 19 Month
  Sex: Male

DRUGS (1)
  1. FENTANYL CITRATE. [Suspect]
     Active Substance: FENTANYL CITRATE
     Indication: PRODUCT USED FOR UNKNOWN INDICATION
     Dosage: UNK
     Route: 065

REACTIONS (5)
  - Apnoeic attack [Recovering/Resolving]
  - Lethargy [Recovering/Resolving]
  - Toxicity to various agents [Recovering/Resolving]
  - Cyanosis [Recovering/Resolving]
  - Miosis [Recovering/Resolving]
